FAERS Safety Report 8276714-2 (Version None)
Quarter: 2012Q2

REPORT INFORMATION
  Report Type: 
  Country: None (occurrence: None)
  Receive Date: 20120412
  Receipt Date: 20120412
  Transmission Date: 20120825
  Serious: No
  Sender: FDA-Public Use
  Company Number: None

PATIENT
  Age: 43 Year
  Sex: Male
  Weight: 127 kg

DRUGS (1)
  1. PREDNISONE [Suspect]

REACTIONS (3)
  - PAIN IN EXTREMITY [None]
  - MIDDLE INSOMNIA [None]
  - MUSCLE SPASMS [None]
